FAERS Safety Report 18398919 (Version 1)
Quarter: 2020Q4

REPORT INFORMATION
  Report Type: Spontaneous
  Country: US (occurrence: US)
  Receive Date: 20201019
  Receipt Date: 20201019
  Transmission Date: 20210114
  Serious: No
  Sender: FDA-Public Use
  Company Number: None

PATIENT
  Age: 60 Year
  Sex: Male

DRUGS (1)
  1. ENTECAVIR TAB 1MG [Suspect]
     Active Substance: ENTECAVIR
     Route: 048
     Dates: start: 201708

REACTIONS (4)
  - Insurance issue [None]
  - Product distribution issue [None]
  - Bone density decreased [None]
  - Blood testosterone decreased [None]

NARRATIVE: CASE EVENT DATE: 20181016
